FAERS Safety Report 7382391-5 (Version None)
Quarter: 2011Q1

REPORT INFORMATION
  Report Type: 
  Country: None (occurrence: None)
  Receive Date: 20110329
  Receipt Date: 20110224
  Transmission Date: 20110831
  Serious: No
  Sender: FDA-Public Use
  Company Number: US-BAYER-2011-019127

PATIENT
  Sex: Female

DRUGS (4)
  1. ALEVE (CAPLET) [Suspect]
     Indication: MIGRAINE
  2. ACETAMINOPHEN [Suspect]
  3. IBUPROFEN [Suspect]
  4. EXCEDRIN (MIGRAINE) [Suspect]

REACTIONS (1)
  - MIGRAINE [None]
